FAERS Safety Report 17962178 (Version 1)
Quarter: 2020Q2

REPORT INFORMATION
  Report Type: Spontaneous
  Country: US (occurrence: US)
  Receive Date: 20200630
  Receipt Date: 20200630
  Transmission Date: 20200714
  Serious: No
  Sender: FDA-Public Use
  Company Number: US-TERSERA THERAPEUTICS LLC-2020TRS001202

PATIENT

DRUGS (3)
  1. ZOLADEX [Suspect]
     Active Substance: GOSERELIN ACETATE
     Indication: LOBULAR BREAST CARCINOMA IN SITU
     Dosage: 3.6 MG, Q 28 DAYS (MONTHLY)
     Route: 058
     Dates: start: 201912
  2. TAMOXIFEN [Concomitant]
     Active Substance: TAMOXIFEN
     Indication: PRODUCT USED FOR UNKNOWN INDICATION
     Dosage: UNK
     Route: 065
  3. ZOLADEX [Suspect]
     Active Substance: GOSERELIN ACETATE
     Dosage: 3.6 MG, Q 28 DAYS (MONTHLY)
     Route: 058
     Dates: start: 20200501

REACTIONS (2)
  - Hot flush [Unknown]
  - Device issue [Unknown]

NARRATIVE: CASE EVENT DATE: 20200501
